FAERS Safety Report 22225462 (Version 1)
Quarter: 2023Q2

REPORT INFORMATION
  Report Type: Spontaneous
  Country: GB (occurrence: GB)
  Receive Date: 20230418
  Receipt Date: 20230418
  Transmission Date: 20230722
  Serious: Yes (Disabling)
  Sender: FDA-Public Use
  Company Number: None

PATIENT
  Age: 76 Year
  Sex: Female
  Weight: 75 kg

DRUGS (14)
  1. BUPRENORPHINE [Suspect]
     Active Substance: BUPRENORPHINE
     Indication: Ill-defined disorder
     Dosage: UNK
     Route: 003
     Dates: start: 20220425
  2. ALENDRONIC ACID [Concomitant]
     Active Substance: ALENDRONIC ACID
     Indication: Ill-defined disorder
     Dosage: TAKE ONE WEEKLY FOR THREE YEARS IN TOTAL. REVIE...
     Route: 065
     Dates: start: 20210415
  3. ATORVASTATIN [Concomitant]
     Active Substance: ATORVASTATIN
     Indication: Ill-defined disorder
     Dosage: TAKE ONE DAILY IN THE EVENING TO LOWER CHOLESTEROL
     Route: 065
     Dates: start: 20220210
  4. BUPRENORPHINE [Concomitant]
     Active Substance: BUPRENORPHINE
     Indication: Ill-defined disorder
     Dosage: APPLY ONE BUPRENORPHINE PATCH EVERY SEVEN DAYS ...
     Route: 065
     Dates: start: 20220412
  5. CAPSAICIN [Concomitant]
     Active Substance: CAPSAICIN
     Indication: Ill-defined disorder
     Dosage: APPLY 3-4 TIMES/DAY
     Route: 065
     Dates: start: 20220412
  6. CLOPIDOGREL [Concomitant]
     Active Substance: CLOPIDOGREL BISULFATE
     Indication: Ill-defined disorder
     Dosage: TAKE ONE ONCE DAILY
     Route: 065
     Dates: start: 20210526
  7. POLYETHYLENE GLYCOL 3350\POTASSIUM CHLORIDE\SODIUM BICARBONATE\SODIUM [Concomitant]
     Active Substance: POLYETHYLENE GLYCOL 3350\POTASSIUM CHLORIDE\SODIUM BICARBONATE\SODIUM CHLORIDE
     Indication: Ill-defined disorder
     Dosage: TAKE THE CONTENTS OF 1-3 SACHETS DAILY IN DIVID...
     Route: 065
     Dates: start: 20210527
  8. GABAPENTIN [Concomitant]
     Active Substance: GABAPENTIN
     Indication: Ill-defined disorder
     Dosage: TAKE ONE CAPSULE THREE TIMES A DAY
     Route: 065
     Dates: start: 20220328, end: 20220425
  9. LANSOPRAZOLE [Concomitant]
     Active Substance: LANSOPRAZOLE
     Indication: Ill-defined disorder
     Dosage: TAKE ONE DAILY
     Route: 065
     Dates: start: 20210914
  10. PROCHLORPERAZINE [Concomitant]
     Active Substance: PROCHLORPERAZINE
     Indication: Ill-defined disorder
     Dosage: TAKE ONE UP TO THREE TIMES A DAY AS NEEDED
     Route: 065
     Dates: start: 20220228, end: 20220309
  11. RAMIPRIL [Concomitant]
     Active Substance: RAMIPRIL
     Indication: Ill-defined disorder
     Dosage: TAKE ONE DAILY
     Route: 065
     Dates: start: 20210526
  12. SIMVASTATIN [Concomitant]
     Active Substance: SIMVASTATIN
     Indication: Ill-defined disorder
     Dosage: TAKE ONE AT NIGHT
     Route: 065
     Dates: start: 20210526, end: 20220210
  13. THEICAL D3 [Concomitant]
     Indication: Ill-defined disorder
     Dosage: TAKE ONE DAILY EXCEPT FOR DAYS WHEN TAKING ALEN...
     Route: 065
     Dates: start: 20210415
  14. ACETAMINOPHEN\CODEINE PHOSPHATE [Concomitant]
     Active Substance: ACETAMINOPHEN\CODEINE PHOSPHATE
     Indication: Ill-defined disorder
     Dosage: TAKE 1 OR 2 4 TIMES/DAY
     Route: 065
     Dates: start: 20210527

REACTIONS (1)
  - Feeling jittery [Recovered/Resolved]

NARRATIVE: CASE EVENT DATE: 20220425
